FAERS Safety Report 5932286-6 (Version None)
Quarter: 2008Q4

REPORT INFORMATION
  Report Type: 
  Country: None (occurrence: None)
  Receive Date: 20081023
  Receipt Date: 20081009
  Transmission Date: 20090506
  Serious: Yes (Congenital Anomaly)
  Sender: FDA-Public Use
  Company Number: 2008-172269-NL

PATIENT
  Sex: Female

DRUGS (3)
  1. FOLLITROPIN BETA [Suspect]
     Indication: OVULATION INDUCTION
  2. MENOTROPINS [Suspect]
     Indication: OVULATION INDUCTION
  3. CHORIONIC GONADTROPIN [Suspect]
     Indication: ASSISTED FERTILISATION

REACTIONS (3)
  - ABORTION SPONTANEOUS [None]
  - MATERNAL DRUGS AFFECTING FOETUS [None]
  - TRISOMY 22 [None]
